FAERS Safety Report 9555883 (Version 1)
Quarter: 2013Q3

REPORT INFORMATION
  Report Type: Spontaneous
  Country: US (occurrence: None)
  Receive Date: 20130826
  Receipt Date: 20130826
  Transmission Date: 20140515
  Serious: Yes (Other)
  Sender: FDA-Public Use
  Company Number: 2013CP000050

PATIENT
  Sex: Male

DRUGS (1)
  1. OFIRMEV [Suspect]
     Indication: PAIN
     Route: 042
     Dates: start: 20130509

REACTIONS (1)
  - Anaphylactic reaction [None]
